FAERS Safety Report 10021505 (Version 2)
Quarter: 2014Q2

REPORT INFORMATION
  Report Type: Spontaneous
  Country: JP (occurrence: None)
  Receive Date: 20140313
  Receipt Date: 20140428
  Transmission Date: 20141212
  Serious: Yes (Other)
  Sender: FDA-Public Use
  Company Number: SP07577

PATIENT
  Age: 61 Year
  Sex: Male

DRUGS (1)
  1. MOVIPREP (SOLUTION) [Suspect]
     Indication: BOWEL PREPARATION
     Route: 048
     Dates: start: 20140215, end: 20140215

REACTIONS (6)
  - Vomiting [None]
  - Urinary tract infection [None]
  - Regurgitation [None]
  - Pyelonephritis [None]
  - Dehydration [None]
  - Bladder discomfort [None]
